FAERS Safety Report 4779711-4 (Version None)
Quarter: 2005Q3

REPORT INFORMATION
  Report Type: 
  Country: None (occurrence: None)
  Receive Date: 20050927
  Receipt Date: 20050915
  Transmission Date: 20060218
  Serious: Yes (Other)
  Sender: FDA-Public Use
  Company Number: NO-BRISTOL-MYERS SQUIBB COMPANY-13121819

PATIENT

DRUGS (1)
  1. APROVEL [Suspect]

REACTIONS (1)
  - HEPATITIS [None]
